FAERS Safety Report 22527401 (Version 1)
Quarter: 2023Q2

REPORT INFORMATION
  Report Type: Spontaneous
  Country: US (occurrence: US)
  Receive Date: 20230606
  Receipt Date: 20230606
  Transmission Date: 20230721
  Serious: No
  Sender: FDA-Public Use
  Company Number: US-BAUSCH-BL-2023-008499

PATIENT
  Sex: Female

DRUGS (1)
  1. CROMOLYN SODIUM [Suspect]
     Active Substance: CROMOLYN SODIUM
     Indication: Hypersensitivity
     Route: 045

REACTIONS (1)
  - Nasal discomfort [Unknown]
